FAERS Safety Report 8390683-6 (Version None)
Quarter: 2012Q2

REPORT INFORMATION
  Report Type: 
  Country: None (occurrence: None)
  Receive Date: 20120529
  Receipt Date: 20120522
  Transmission Date: 20120825
  Serious: Yes (Hospitalization, Congenital Anomaly)
  Sender: FDA-Public Use
  Company Number: PHHY2012DE043927

PATIENT
  Sex: Female
  Weight: 2.75 kg

DRUGS (10)
  1. CARBAMAZEPINE [Suspect]
     Indication: EPILEPSY
     Dosage: 600 MG/ DAY
     Route: 064
     Dates: start: 20110608, end: 20111013
  2. LEVOTHYROXINE SODIUM [Concomitant]
     Indication: HYPOTHYROIDISM
     Dosage: 50 UG, DAILY
     Route: 064
     Dates: start: 20110111, end: 20111013
  3. TOPIRAMATE [Suspect]
     Indication: EPILEPSY
     Dosage: 150 MG, BID
     Route: 064
     Dates: start: 20110111, end: 20111013
  4. CLOBAZAM [Suspect]
     Indication: EPILEPSY
     Dosage: 30 MG/DAY
     Route: 064
     Dates: start: 20110329
  5. VALPROIC ACID [Suspect]
     Indication: EPILEPSY
     Dosage: 600 MG, BID
     Route: 064
     Dates: start: 20110111, end: 20110329
  6. CLOBAZAM [Suspect]
     Dosage: FROM GESTATIONAL WEEKS 33+2 15 MG/DAY
     Route: 064
     Dates: end: 20111013
  7. LAMOTRGINE [Concomitant]
     Indication: EPILEPSY
     Dosage: 175 MG DAILY
     Route: 064
     Dates: start: 20110329, end: 20110525
  8. CLOBAZAM [Suspect]
     Dosage: FROM GESTATIONAL WEEKS 18.7 25MG/DAY
     Route: 064
  9. CLOBAZAM [Suspect]
     Dosage: FROM GESTATIONAL WEEKS 32 TO 33+1 20 MG/DAY
     Route: 064
  10. FOLIC ACID [Concomitant]
     Indication: PROPHYLAXIS OF NEURAL TUBE DEFECT
     Dosage: 5 MG, DAILY
     Route: 064
     Dates: start: 20110329, end: 20110607

REACTIONS (7)
  - CARDIAC MURMUR [None]
  - FOETAL EXPOSURE DURING PREGNANCY [None]
  - VENTRICULAR SEPTAL DEFECT [None]
  - CONGENITAL CYSTIC KIDNEY DISEASE [None]
  - ATRIAL SEPTAL DEFECT [None]
  - SMALL FOR DATES BABY [None]
  - CONGENITAL ARTERIAL MALFORMATION [None]
